FAERS Safety Report 24223616 (Version 2)
Quarter: 2024Q3

REPORT INFORMATION
  Report Type: Spontaneous
  Country: PT (occurrence: PT)
  Receive Date: 20240819
  Receipt Date: 20240829
  Transmission Date: 20241017
  Serious: Yes (Life-Threatening, Other)
  Sender: PFIZER
  Company Number: None

PATIENT
  Age: 83 Year
  Sex: Male
  Weight: 92 kg

DRUGS (7)
  1. PANTOPRAZOLE [Interacting]
     Active Substance: PANTOPRAZOLE
     Dosage: UNK
     Route: 065
  2. AMLODIPINE BESYLATE [Interacting]
     Active Substance: AMLODIPINE BESYLATE
     Dosage: UNK
     Route: 065
  3. ESCITALOPRAM OXALATE [Suspect]
     Active Substance: ESCITALOPRAM OXALATE
     Indication: Depression
     Dosage: 10 MILLIGRAM, QD
     Route: 048
     Dates: start: 20240514, end: 20240520
  4. ALLOPURINOL [Concomitant]
     Active Substance: ALLOPURINOL
     Dosage: UNK
  5. ENOXAPARIN SODIUM [Concomitant]
     Active Substance: ENOXAPARIN SODIUM
     Dosage: UNK
  6. PREDNISOLONE [Concomitant]
     Active Substance: PREDNISOLONE
     Dosage: UNK
  7. CHOLECALCIFEROL [Concomitant]
     Active Substance: CHOLECALCIFEROL
     Dosage: UNK

REACTIONS (2)
  - Agranulocytosis [Recovered/Resolved]
  - Drug interaction [Unknown]

NARRATIVE: CASE EVENT DATE: 20240520
